FAERS Safety Report 8761926 (Version 2)
Quarter: 2012Q4

REPORT INFORMATION
  Report Type: 
  Country: US (occurrence: US)
  Receive Date: 20120830
  Receipt Date: 20120912
  Transmission Date: 20130627
  Serious: Yes (Death)
  Sender: FDA-Public Use
  Company Number: CHPA2012US018846

PATIENT
  Age: 74 Year
  Sex: Male

DRUGS (1)
  1. MAALOX ANTACID/ANTIGAS MAX LIQ UNKNOWN [Suspect]
     Indication: ULCER
     Dosage: Unk, Unk
     Route: 048

REACTIONS (2)
  - Death [Fatal]
  - Off label use [Unknown]
